FAERS Safety Report 23386622 (Version 1)
Quarter: 2024Q1

REPORT INFORMATION
  Report Type: Report from Study
  Country: NL (occurrence: NL)
  Receive Date: 20240110
  Receipt Date: 20240110
  Transmission Date: 20240410
  Serious: Yes (Death, Other)
  Sender: FDA-Public Use
  Company Number: NL-AstraZeneca-2023A274819

PATIENT
  Age: 273 Day
  Sex: Female
  Weight: 2.7 kg

DRUGS (6)
  1. SYNAGIS [Suspect]
     Active Substance: PALIVIZUMAB
     Indication: Fallot^s tetralogy
     Dosage: 15 MG/KG MONTHLY
     Route: 030
     Dates: start: 20231116
  2. SYNAGIS [Suspect]
     Active Substance: PALIVIZUMAB
     Indication: Haemorrhoids thrombosed
  3. SYNAGIS [Suspect]
     Active Substance: PALIVIZUMAB
     Indication: Hyperinsulinism
  4. FREKA [Concomitant]
     Indication: Product used for unknown indication
     Dosage: 2\,5ML
  5. NEXIUM [Concomitant]
     Active Substance: ESOMEPRAZOLE MAGNESIUM
     Indication: Product used for unknown indication
  6. URSODIOL [Concomitant]
     Active Substance: URSODIOL
     Indication: Product used for unknown indication

REACTIONS (1)
  - Death [Fatal]

NARRATIVE: CASE EVENT DATE: 20231218
